FAERS Safety Report 13540308 (Version 1)
Quarter: 2017Q2

REPORT INFORMATION
  Report Type: Report from Study
  Country: US (occurrence: US)
  Receive Date: 20170512
  Receipt Date: 20170512
  Transmission Date: 20170830
  Serious: Yes (Death, Hospitalization, Other)
  Sender: FDA-Public Use
  Company Number: US-ARIAD PHARMACEUTICALS, INC-2017US007972

PATIENT
  Age: 50 Year
  Sex: Male

DRUGS (1)
  1. ICLUSIG [Suspect]
     Active Substance: PONATINIB
     Indication: ACUTE LYMPHOCYTIC LEUKAEMIA
     Dosage: 30 MG, QD
     Route: 048
     Dates: start: 20170316

REACTIONS (6)
  - Acute lymphocytic leukaemia recurrent [Unknown]
  - Fatigue [Unknown]
  - Human rhinovirus test positive [Unknown]
  - Asthenia [Unknown]
  - Immune system disorder [Unknown]
  - Death [Fatal]

NARRATIVE: CASE EVENT DATE: 201703
